FAERS Safety Report 5934235-3 (Version None)
Quarter: 2008Q4

REPORT INFORMATION
  Report Type: 
  Country: None (occurrence: None)
  Receive Date: 20081028
  Receipt Date: 20081028
  Transmission Date: 20090506
  Serious: No
  Sender: FDA-Public Use
  Company Number: None

PATIENT
  Age: 44 Year
  Sex: Female
  Weight: 92.9874 kg

DRUGS (1)
  1. RAMIPRIL [Suspect]
     Indication: HYPERTENSION
     Dosage: 10 MG 1 X A DAY PO
     Route: 048
     Dates: start: 20081001, end: 20081026

REACTIONS (5)
  - LIP DISORDER [None]
  - NASAL DISORDER [None]
  - ORAL DISORDER [None]
  - PAIN [None]
  - RASH PAPULAR [None]
